FAERS Safety Report 4518680-9 (Version None)
Quarter: 2004Q4

REPORT INFORMATION
  Report Type: 
  Country: None (occurrence: None)
  Receive Date: 20041201
  Receipt Date: 20041130
  Transmission Date: 20050328
  Serious: Yes (Hospitalization)
  Sender: FDA-Public Use
  Company Number: FR9388606JAN2003

PATIENT
  Age: 25 Year
  Sex: Female

DRUGS (4)
  1. RAPAMUNE [Suspect]
     Indication: PROPHYLAXIS AGAINST TRANSPLANT REJECTION
     Dosage: 6 MG DAILY AND THEN 4 MG DAILY AT THE TIME OF THE EVENT ONSET ORAL
     Route: 048
     Dates: start: 20021105
  2. PREDNISONE [Concomitant]
  3. CELLCEPT [Concomitant]
  4. CELLCEPT [Concomitant]

REACTIONS (3)
  - BENIGN INTRACRANIAL HYPERTENSION [None]
  - LUMBAR PUNCTURE HEADACHE [None]
  - PAPILLOEDEMA [None]
